FAERS Safety Report 18847631 (Version 1)
Quarter: 2021Q1

REPORT INFORMATION
  Report Type: Report from Study
  Country: PL (occurrence: PL)
  Receive Date: 20210204
  Receipt Date: 20210204
  Transmission Date: 20210419
  Serious: Yes (Death)
  Sender: FDA-Public Use
  Company Number: PL-PFIZER INC-2020507291

PATIENT
  Age: 62 Year
  Sex: Male
  Weight: 86 kg

DRUGS (5)
  1. IRINOTECAN HCL [Suspect]
     Active Substance: IRINOTECAN HYDROCHLORIDE
     Indication: COLORECTAL CANCER METASTATIC
     Dosage: 370.8 MG, 1X/DAY
     Route: 042
     Dates: start: 20201104, end: 20201104
  2. CETUXIMAB. [Suspect]
     Active Substance: CETUXIMAB
     Indication: COLORECTAL CANCER METASTATIC
     Dosage: 1030 MG
     Route: 042
     Dates: start: 20201104, end: 20201104
  3. CETUXIMAB. [Suspect]
     Active Substance: CETUXIMAB
     Dosage: 1020 MG
     Route: 042
     Dates: start: 20200405
  4. FOLINIC ACID [Suspect]
     Active Substance: LEUCOVORIN
     Indication: COLORECTAL CANCER METASTATIC
     Dosage: 412 MG, 1X/DAY
     Route: 042
     Dates: start: 20201104, end: 20201105
  5. FLUOROURACIL. [Suspect]
     Active Substance: FLUOROURACIL
     Indication: COLORECTAL CANCER METASTATIC
     Dosage: 2060 MG, 1X/DAY
     Route: 042
     Dates: start: 20201104, end: 20201105

REACTIONS (2)
  - Death [Fatal]
  - Off label use [Unknown]

NARRATIVE: CASE EVENT DATE: 20201110
